FAERS Safety Report 17994654 (Version 1)
Quarter: 2020Q3

REPORT INFORMATION
  Report Type: Spontaneous
  Country: TN (occurrence: TN)
  Receive Date: 20200708
  Receipt Date: 20200708
  Transmission Date: 20201103
  Serious: Yes (Other)
  Sender: FDA-Public Use
  Company Number: TN-BIOVITRUM-2020TN3557

PATIENT
  Sex: Female

DRUGS (1)
  1. ORFADIN [Suspect]
     Active Substance: NITISINONE
     Indication: TYROSINAEMIA

REACTIONS (4)
  - Hepatocellular carcinoma [Unknown]
  - Alpha 1 foetoprotein increased [Unknown]
  - Liver transplant [Unknown]
  - Hepatomegaly [Unknown]
